FAERS Safety Report 21498396 (Version 1)
Quarter: 2022Q4

REPORT INFORMATION
  Report Type: Spontaneous
  Country: US (occurrence: None)
  Receive Date: 20221021
  Receipt Date: 20221021
  Transmission Date: 20230112
  Serious: Yes (Other)
  Sender: FDA-Public Use
  Company Number: None

PATIENT
  Age: 70 Year
  Sex: Female
  Weight: 94 kg

DRUGS (6)
  1. OXALIPLATIN [Suspect]
     Active Substance: OXALIPLATIN
     Indication: Colon cancer stage IV
     Dosage: FREQUENCY : EVERY OTHER WEEK;?
     Route: 042
     Dates: start: 20220902
  2. OXALIPLATIN [Suspect]
     Active Substance: OXALIPLATIN
     Indication: Colon cancer
  3. DEXAMETHASONE [Concomitant]
     Active Substance: DEXAMETHASONE
     Dates: start: 20220902, end: 20221017
  4. LEUCOVORIN [Concomitant]
     Active Substance: LEUCOVORIN
     Dates: start: 20220902, end: 20221017
  5. FLUOROURACIL [Concomitant]
     Active Substance: FLUOROURACIL
     Dates: start: 20220902, end: 20221017
  6. PALONOSETRON [Concomitant]
     Active Substance: PALONOSETRON
     Dates: start: 20220902, end: 20221017

REACTIONS (7)
  - Throat tightness [None]
  - Throat irritation [None]
  - Dizziness [None]
  - Throat irritation [None]
  - Oxygen consumption increased [None]
  - Tachycardia [None]
  - Infusion related reaction [None]

NARRATIVE: CASE EVENT DATE: 20220915
